FAERS Safety Report 5422184-9 (Version None)
Quarter: 2007Q3

REPORT INFORMATION
  Report Type: 
  Country: None (occurrence: None)
  Receive Date: 20070821
  Receipt Date: 20070821
  Transmission Date: 20080115
  Serious: Yes (Hospitalization)
  Sender: FDA-Public Use
  Company Number: None

PATIENT
  Sex: Female
  Weight: 118 kg

DRUGS (1)
  1. ENOXAPARIN 30 MG AVENTIS [Suspect]
     Indication: THROMBOSIS PROPHYLAXIS
     Dosage: 30 MG Q12H SQ
     Route: 058
     Dates: start: 20070730, end: 20070813

REACTIONS (2)
  - RASH ERYTHEMATOUS [None]
  - RASH PRURITIC [None]
